FAERS Safety Report 6103035-6 (Version None)
Quarter: 2009Q1

REPORT INFORMATION
  Report Type: 
  Country: None (occurrence: None)
  Receive Date: 20090305
  Receipt Date: 20090304
  Transmission Date: 20090719
  Serious: Yes (Hospitalization, Other)
  Sender: FDA-Public Use
  Company Number: PHHO2007SE02293

PATIENT
  Sex: Male

DRUGS (4)
  1. LOTREL [Suspect]
     Indication: HYPERTENSION
     Dosage: LEVEL 1
     Route: 048
     Dates: start: 20050302, end: 20050322
  2. LOTREL [Suspect]
     Dosage: LEVEL 2
     Route: 048
     Dates: start: 20050322, end: 20050419
  3. LOTREL [Suspect]
     Dosage: LEVEL 3
     Route: 048
     Dates: start: 20050419
  4. XELODA [Suspect]
     Indication: COLON CANCER
     Dosage: 500 MG, UNK
     Dates: start: 20061001

REACTIONS (5)
  - ANAEMIA [None]
  - DIZZINESS [None]
  - HYPOTENSION [None]
  - RENAL IMPAIRMENT [None]
  - SYNCOPE [None]
